FAERS Safety Report 7948686-9 (Version None)
Quarter: 2011Q4

REPORT INFORMATION
  Report Type: 
  Country: None (occurrence: None)
  Receive Date: 20111130
  Receipt Date: 20111130
  Transmission Date: 20120403
  Serious: Yes (Other)
  Sender: FDA-Public Use
  Company Number: None

PATIENT
  Age: 69 Year
  Sex: Female
  Weight: 72 kg

DRUGS (1)
  1. MARCAINE [Suspect]
     Indication: KNEE ARTHROPLASTY
     Dosage: 3ML
     Route: 037
     Dates: start: 20111129, end: 20111129

REACTIONS (3)
  - PRODUCT MEASURED POTENCY ISSUE [None]
  - LIMB DISCOMFORT [None]
  - ANAESTHETIC COMPLICATION [None]
